FAERS Safety Report 9401541 (Version 3)
Quarter: 2013Q4

REPORT INFORMATION
  Report Type: Report from Study
  Country: IT (occurrence: IT)
  Receive Date: 20130716
  Receipt Date: 20131030
  Transmission Date: 20140711
  Serious: Yes (Other)
  Sender: FDA-Public Use
  Company Number: IT-ALEXION PHARMACEUTICALS INC.-A201301593

PATIENT
  Sex: Male
  Weight: 14 kg

DRUGS (3)
  1. SOLIRIS [Suspect]
     Indication: HAEMOLYTIC URAEMIC SYNDROME
     Dosage: 300 MG, QW
     Route: 042
     Dates: start: 20120825
  2. SOLIRIS [Suspect]
     Dosage: 300 MG, Q3W
     Route: 042
  3. SOLIRIS [Suspect]
     Dosage: 300 MG, QW
     Route: 042
     Dates: end: 20131010

REACTIONS (3)
  - Pseudomonas infection [Unknown]
  - Renal failure chronic [Unknown]
  - Respiratory tract infection [Unknown]
